FAERS Safety Report 6148873-9 (Version None)
Quarter: 2009Q2

REPORT INFORMATION
  Report Type: 
  Country: None (occurrence: None)
  Receive Date: 20090408
  Receipt Date: 20090401
  Transmission Date: 20091009
  Serious: Yes (Other)
  Sender: FDA-Public Use
  Company Number: US-AMGEN-QUU338811

PATIENT
  Sex: Female
  Weight: 147.1 kg

DRUGS (6)
  1. ENBREL [Suspect]
     Indication: DRUG USE FOR UNKNOWN INDICATION
     Route: 058
     Dates: start: 20071018, end: 20080103
  2. HYDROCHLOROTHIAZIDE [Concomitant]
  3. POTASSIUM CHLORIDE [Concomitant]
  4. LEVOXYL [Concomitant]
  5. CALCIUM WITH VITAMIN D [Concomitant]
  6. MULTI-VITAMINS [Concomitant]

REACTIONS (2)
  - LEUKOCYTOCLASTIC VASCULITIS [None]
  - SKIN DISCOLOURATION [None]
